FAERS Safety Report 6031127-9 (Version None)
Quarter: 2008Q4

REPORT INFORMATION
  Report Type: 
  Country: None (occurrence: None)
  Receive Date: 20081222
  Receipt Date: 20081013
  Transmission Date: 20090506
  Serious: No
  Sender: FDA-Public Use
  Company Number: US-WYE-H06398608

PATIENT
  Age: 55 Year
  Sex: Female
  Weight: 59.02 kg

DRUGS (3)
  1. PRISTIQ [Suspect]
     Indication: DEPRESSION
     Dosage: 50 MG, ORAL
     Route: 048
  2. ACIPHEX [Concomitant]
  3. ALPRAZOLAM [Concomitant]

REACTIONS (2)
  - ANXIETY [None]
  - CHEST DISCOMFORT [None]
